FAERS Safety Report 9272998 (Version 1)
Quarter: 2013Q2

REPORT INFORMATION
  Report Type: Spontaneous
  Country: AU (occurrence: AU)
  Receive Date: 20130506
  Receipt Date: 20130506
  Transmission Date: 20140414
  Serious: Yes (Life-Threatening)
  Sender: FDA-Public Use
  Company Number: AU-BAXTER-2012BAX021902

PATIENT
  Age: 26 Year
  Sex: Female
  Weight: 70 kg

DRUGS (4)
  1. BAXTER 0.9% SODIUM CHLORIDE 450MG_50ML INJECTION BP BAG AHB1306_AHB136 [Suspect]
     Indication: MEDICATION DILUTION
     Route: 042
  2. BAXTER WATER FOR INJECTIONS 1000ML INJECTION BP BAG AHB0304 [Suspect]
     Indication: MEDICATION DILUTION
     Route: 042
     Dates: start: 20120823, end: 20120823
  3. INFLIXIMAB [Suspect]
     Indication: CHEMOTHERAPY
     Route: 042
     Dates: start: 20120823, end: 20120823
  4. INFLIXIMAB [Suspect]
     Indication: PSORIATIC ARTHROPATHY

REACTIONS (2)
  - Feeling hot [Recovered/Resolved]
  - Flushing [Recovered/Resolved]
